FAERS Safety Report 9311952 (Version 1)
Quarter: 2013Q2

REPORT INFORMATION
  Report Type: Spontaneous
  Country: US (occurrence: US)
  Receive Date: 20130528
  Receipt Date: 20130528
  Transmission Date: 20140414
  Serious: Yes (Death, Other)
  Sender: FDA-Public Use
  Company Number: US-JNJFOC-20130508176

PATIENT
  Sex: 0

DRUGS (2)
  1. DOXORUBICIN HYDROCHLORIDE (DOXIL) [Suspect]
     Indication: KAPOSI^S SARCOMA
     Dosage: INTRAVENOUSLY INFUSED OVER 30 TO 60 MINUTES
     Route: 042
  2. ANTIRETROVIRAL MEDICATIONS [Suspect]
     Indication: HIV INFECTION
     Dosage: HIGHLY ACTIVE ANTIRETROVIRAL THERAPY
     Route: 065

REACTIONS (17)
  - Death [Fatal]
  - Pyrexia [Unknown]
  - Leukopenia [Unknown]
  - Haemoglobin abnormal [Unknown]
  - Lymphopenia [Unknown]
  - Neutropenia [Unknown]
  - Thrombocytopenia [Unknown]
  - Febrile neutropenia [Unknown]
  - Infection [Unknown]
  - Decreased appetite [Unknown]
  - Fatigue [Unknown]
  - Nausea [Unknown]
  - Aspartate aminotransferase increased [Unknown]
  - Alanine aminotransferase increased [Unknown]
  - Pain [Recovered/Resolved]
  - Kaposi^s sarcoma [Unknown]
  - CD4 lymphocytes decreased [Unknown]
